FAERS Safety Report 4575382-0 (Version None)
Quarter: 2005Q1

REPORT INFORMATION
  Report Type: 
  Country: None (occurrence: None)
  Receive Date: 20050131
  Receipt Date: 20050131
  Transmission Date: 20050727
  Serious: Yes (Other)
  Sender: FDA-Public Use
  Company Number: None

PATIENT
  Sex: Male
  Weight: 88.4514 kg

DRUGS (8)
  1. MOBIC [Suspect]
     Indication: OSTEOARTHRITIS
     Dosage: 15MG  QD   ORAL
     Route: 048
     Dates: start: 20050106, end: 20050116
  2. COMBIVENT [Concomitant]
  3. NITROGLYCERIN [Concomitant]
  4. NIFEDIPINE [Concomitant]
  5. LIPITOR [Concomitant]
  6. NITROQUICK [Concomitant]
  7. METOPROLOL [Concomitant]
  8. ASPIRIN [Concomitant]

REACTIONS (1)
  - DEPRESSIVE SYMPTOM [None]
